FAERS Safety Report 5514144-4 (Version None)
Quarter: 2007Q4

REPORT INFORMATION
  Report Type: 
  Country: None (occurrence: None)
  Receive Date: 20071106
  Receipt Date: 20061218
  Transmission Date: 20080405
  Serious: Yes (Hospitalization)
  Sender: FDA-Public Use
  Company Number: US200612003359

PATIENT
  Sex: Female

DRUGS (2)
  1. PROZAC [Suspect]
     Indication: NERVOUS SYSTEM DISORDER
     Dates: start: 20000101
  2. CELEXA [Concomitant]

REACTIONS (2)
  - AGGRESSION [None]
  - SUICIDE ATTEMPT [None]
